FAERS Safety Report 10397021 (Version 3)
Quarter: 2014Q3

REPORT INFORMATION
  Report Type: Spontaneous
  Country: JP (occurrence: JP)
  Receive Date: 20140820
  Receipt Date: 20140929
  Transmission Date: 20150326
  Serious: Yes (Other)
  Sender: FDA-Public Use
  Company Number: JP-NAPPMUNDI-GBR-2014-0020115

PATIENT
  Sex: Male

DRUGS (8)
  1. OXYCODONE HCL IMMEDIATE RELEASE TABLETS [Suspect]
     Active Substance: OXYCODONE HYDROCHLORIDE
     Indication: CANCER PAIN
     Dosage: 5 MG, UNK
     Route: 048
     Dates: start: 20140423
  2. CHLORPROMAZINE [Concomitant]
     Active Substance: CHLORPROMAZINE
     Dosage: 25 MG, DAILY
     Dates: end: 20140519
  3. OXYCODONE HCL PR TABLET 10 MG [Suspect]
     Active Substance: OXYCODONE HYDROCHLORIDE
     Dosage: 40 MG, UNK
     Route: 048
     Dates: start: 20140509, end: 20140509
  4. OXYCODONE HCL IMMEDIATE RELEASE TABLETS [Suspect]
     Active Substance: OXYCODONE HYDROCHLORIDE
     Dosage: 2.5 MG, UNK
     Route: 048
     Dates: start: 20140422, end: 20140422
  5. GEFITINIB [Concomitant]
     Active Substance: GEFITINIB
     Dosage: 250 MG, DAILY
  6. OXYCODONE HCL PR TABLET 10 MG [Suspect]
     Active Substance: OXYCODONE HYDROCHLORIDE
     Dosage: 20 MG, UNK
     Route: 048
     Dates: start: 20140423, end: 20140508
  7. OXYCODONE HCL PR TABLET 10 MG [Suspect]
     Active Substance: OXYCODONE HYDROCHLORIDE
     Indication: CANCER PAIN
     Dosage: 30 MG, UNK
     Route: 048
     Dates: start: 20140510
  8. OXYCODONE HCL PR TABLET 10 MG [Suspect]
     Active Substance: OXYCODONE HYDROCHLORIDE
     Dosage: 10 MG, UNK
     Route: 048
     Dates: start: 20140422, end: 20140422

REACTIONS (2)
  - Sedation [Recovered/Resolved]
  - Delirium [Recovered/Resolved]

NARRATIVE: CASE EVENT DATE: 20140509
